FAERS Safety Report 12872873 (Version 4)
Quarter: 2017Q2

REPORT INFORMATION
  Report Type: Report from Study
  Country: US (occurrence: US)
  Receive Date: 20161021
  Receipt Date: 20170519
  Transmission Date: 20170830
  Serious: Yes (Hospitalization)
  Sender: FDA-Public Use
  Company Number: US-JNJFOC-20161015045

PATIENT
  Age: 16 Year
  Sex: Male
  Weight: 71.3 kg

DRUGS (4)
  1. PREDNISONE. [Concomitant]
     Active Substance: PREDNISONE
  2. METHOTREXATE. [Concomitant]
     Active Substance: METHOTREXATE
  3. 5-ASA [Concomitant]
     Active Substance: MESALAMINE
  4. REMICADE [Suspect]
     Active Substance: INFLIXIMAB
     Indication: INFLAMMATORY BOWEL DISEASE
     Route: 042
     Dates: start: 20110810

REACTIONS (1)
  - Abscess sterile [Recovered/Resolved]

NARRATIVE: CASE EVENT DATE: 20160923
